FAERS Safety Report 9401955 (Version 1)
Quarter: 2013Q3

REPORT INFORMATION
  Report Type: Spontaneous
  Country: US (occurrence: US)
  Receive Date: 20130716
  Receipt Date: 20130716
  Transmission Date: 20140515
  Serious: No
  Sender: FDA-Public Use
  Company Number: US-PFIZER INC-2013206472

PATIENT
  Age: 54 Year
  Sex: Female
  Weight: 79.37 kg

DRUGS (6)
  1. NEURONTIN [Suspect]
     Indication: NEUROPATHY PERIPHERAL
     Dosage: 400 MG IN THE MORNING, 800 MG (2X400MG) IN MID DAY AND 400 MG AT BED TIME, 3X/DAY
     Route: 048
  2. GLYBURIDE [Concomitant]
     Dosage: 5 MG, DAILY
     Route: 048
  3. TRAZODONE HYDROCHLORIDE [Concomitant]
     Dosage: 200 MG (TWO TABLET OF 100 MG ), 3X/DAY
     Route: 048
  4. LOVASTATIN [Concomitant]
     Dosage: 20 MG, DAILY
     Route: 048
  5. LISINOPRIL W/HYDROCHLOROTHIAZIDE [Concomitant]
     Dosage: LISINOPRIL (20MG), HYDROCHLOROTHIAZIDE(25MG), DAILY
     Route: 048
  6. SYNTHROID [Concomitant]
     Indication: THYROID DISORDER
     Dosage: 112 UG, DAILY
     Route: 048

REACTIONS (1)
  - Drug ineffective [Unknown]
